FAERS Safety Report 12725716 (Version 1)
Quarter: 2016Q3

REPORT INFORMATION
  Report Type: Spontaneous
  Country: US (occurrence: US)
  Receive Date: 20160906
  Receipt Date: 20160906
  Transmission Date: 20161109
  Serious: Yes (Other)
  Sender: FDA-Public Use
  Company Number: None

PATIENT
  Age: 38 Year
  Sex: Female
  Weight: 67.5 kg

DRUGS (1)
  1. TB SKIN TEST PROTEIN [Suspect]
     Active Substance: TUBERCULIN PURIFIED PROTEIN DERIVATIVE
     Route: 058

REACTIONS (7)
  - Fatigue [None]
  - Feeling abnormal [None]
  - Hyperhidrosis [None]
  - Mental impairment [None]
  - Dizziness [None]
  - Pyrexia [None]
  - Presyncope [None]

NARRATIVE: CASE EVENT DATE: 20160906
